FAERS Safety Report 6414726-1 (Version None)
Quarter: 2009Q4

REPORT INFORMATION
  Report Type: 
  Country: None (occurrence: None)
  Receive Date: 20091026
  Receipt Date: 20091026
  Transmission Date: 20100525
  Serious: Yes (Other)
  Sender: FDA-Public Use
  Company Number: None

PATIENT
  Sex: Female

DRUGS (2)
  1. WELLBUTRIN XL [Suspect]
     Indication: ANXIETY
     Dosage: # 90 QAM ORAL
     Route: 048
     Dates: start: 20040101
  2. WELLBUTRIN XL [Suspect]
     Indication: BIPOLAR DISORDER
     Dosage: # 90 QAM ORAL
     Route: 048
     Dates: start: 20040101

REACTIONS (3)
  - NAUSEA [None]
  - PRODUCT SUBSTITUTION ISSUE [None]
  - VOMITING [None]
